FAERS Safety Report 7552426-5 (Version None)
Quarter: 2011Q2

REPORT INFORMATION
  Report Type: 
  Country: None (occurrence: None)
  Receive Date: 20110616
  Receipt Date: 20110609
  Transmission Date: 20111010
  Serious: Yes (Hospitalization)
  Sender: FDA-Public Use
  Company Number: US-PFIZER INC-2011126331

PATIENT
  Sex: Male

DRUGS (15)
  1. VITAMIN D [Concomitant]
     Dosage: UNK
     Dates: start: 20090701, end: 20110306
  2. ADVAIR DISKUS 100/50 [Concomitant]
     Dosage: UNK
     Dates: start: 20060901
  3. AMLODIPINE AND ATORVASTATIN [Suspect]
     Indication: HYPERTENSION
     Dosage: 10 MG/80 MG, 1X/DAY
     Route: 048
     Dates: start: 20090214, end: 20110306
  4. PREDNISOLONE [Concomitant]
     Dosage: UNK
     Dates: start: 20070201
  5. CLONIDINE [Concomitant]
     Dosage: UNK
     Dates: start: 20090213, end: 20110306
  6. GLUCOSAMINE [Concomitant]
     Dosage: UNK
     Dates: start: 20090213, end: 20110306
  7. ADVAIR DISKUS 100/50 [Concomitant]
     Dosage: UNK
     Dates: start: 20050201
  8. HYDROCHLOROTHIAZIDE [Concomitant]
     Dosage: UNK
     Dates: start: 20081104, end: 20110306
  9. ACETYLSALICYLIC ACID [Concomitant]
     Dosage: UNK
     Dates: start: 20100921, end: 20110306
  10. SPIRIVA [Concomitant]
     Dosage: UNK
     Dates: start: 20060901
  11. AMLODIPINE AND ATORVASTATIN [Suspect]
     Indication: HYPERLIPIDAEMIA
  12. COLCHICINE [Concomitant]
     Dosage: UNK
     Dates: start: 20070201, end: 20110306
  13. CITALOPRAM [Concomitant]
     Dosage: UNK
     Dates: start: 20100721
  14. PLAVIX [Concomitant]
     Dosage: UNK
     Dates: start: 20080711, end: 20110306
  15. VITAMIN B-12 [Suspect]
     Dosage: UNK
     Dates: start: 20070201, end: 20110306

REACTIONS (1)
  - PLEURAL EFFUSION [None]
